FAERS Safety Report 6509570-0 (Version None)
Quarter: 2009Q4

REPORT INFORMATION
  Report Type: 
  Country: None (occurrence: None)
  Receive Date: 20091216
  Receipt Date: 20091130
  Transmission Date: 20100525
  Serious: Yes (Hospitalization, Other)
  Sender: FDA-Public Use
  Company Number: 2009SA004151

PATIENT
  Age: 49 Year
  Sex: Male

DRUGS (8)
  1. FLUDARABINE PHOSPHATE [Suspect]
     Indication: CHRONIC LYMPHOCYTIC LEUKAEMIA
     Dosage: 90 MILLIGRAM(S);EVERY CYCLE;ORAL
     Route: 048
     Dates: start: 20090324, end: 20090828
  2. CAMPATH [Suspect]
     Indication: CHRONIC LYMPHOCYTIC LEUKAEMIA
     Dosage: 30 MILLIGRAM(S);EVERY CYCLE;SUBCUTANEOUS
     Route: 058
     Dates: start: 20090324, end: 20090828
  3. CYCLOPHOSPHAMIDE [Suspect]
     Indication: CHRONIC LYMPHOCYTIC LEUKAEMIA
     Dosage: 575 MILLIGRAM(S);EVERY CYCLE;ORAL
     Route: 048
     Dates: start: 20090324, end: 20090828
  4. VALACYCLOVIR HCL [Concomitant]
  5. COTRIMOXAZOL ^ALUID^ [Concomitant]
  6. FLUCONAZOLE [Concomitant]
  7. OMEPRAZOLE [Concomitant]
  8. PREV MEDS [Concomitant]

REACTIONS (2)
  - ABDOMINAL INFECTION [None]
  - LYMPHOMA [None]
